FAERS Safety Report 6085369-7 (Version None)
Quarter: 2009Q1

REPORT INFORMATION
  Report Type: 
  Country: None (occurrence: None)
  Receive Date: 20090217
  Receipt Date: 20090128
  Transmission Date: 20090719
  Serious: Yes (Other)
  Sender: FDA-Public Use
  Company Number: B0558251A

PATIENT
  Age: 2 Day
  Sex: Female
  Weight: 0.3175 kg

DRUGS (1)
  1. ACYCLOVIR [Suspect]
     Indication: HERPES SIMPLEX
     Dosage: 100 MG/KG/THREE TIMES PER DAY/ INTRA

REACTIONS (7)
  - CRYING [None]
  - INSOMNIA [None]
  - KIDNEY ENLARGEMENT [None]
  - NEPHROPATHY TOXIC [None]
  - OVERDOSE [None]
  - RENAL FAILURE ACUTE [None]
  - WEIGHT INCREASED [None]
